FAERS Safety Report 6711871-8 (Version None)
Quarter: 2010Q2

REPORT INFORMATION
  Report Type: 
  Country: None (occurrence: None)
  Receive Date: 20100505
  Receipt Date: 20100423
  Transmission Date: 20101027
  Serious: Yes (Other)
  Sender: FDA-Public Use
  Company Number: DE-ELI_LILLY_AND_COMPANY-DE201004007464

PATIENT
  Sex: Female

DRUGS (7)
  1. BYETTA [Suspect]
     Dosage: 10 UG, 2/D
     Route: 058
     Dates: start: 20080101
  2. LEVOTHYROXINE SODIUM [Concomitant]
     Dosage: UNK, UNKNOWN
     Route: 065
  3. ATACAND HCT [Concomitant]
     Dosage: UNK, UNKNOWN
     Route: 065
  4. BISOPROLOL FUMARATE [Concomitant]
     Dosage: UNK, UNKNOWN
     Route: 065
  5. ALLOPURINOL [Concomitant]
     Dosage: UNK, UNKNOWN
     Route: 065
  6. RESTEX [Concomitant]
     Dosage: UNK, UNKNOWN
     Route: 065
  7. SIOFOR [Concomitant]
     Dosage: UNK, UNKNOWN
     Route: 065

REACTIONS (2)
  - HYPOGLYCAEMIA [None]
  - HYPOGLYCAEMIC UNCONSCIOUSNESS [None]
